FAERS Safety Report 19401659 (Version 1)
Quarter: 2021Q2

REPORT INFORMATION
  Report Type: Spontaneous
  Country: US (occurrence: US)
  Receive Date: 20210611
  Receipt Date: 20210611
  Transmission Date: 20210717
  Serious: No
  Sender: FDA-Public Use
  Company Number: US-AXELLIA-003791

PATIENT
  Sex: Female

DRUGS (1)
  1. VANCO READY (VANCOMYCIN) [Suspect]
     Active Substance: VANCOMYCIN
     Indication: PRODUCT USED FOR UNKNOWN INDICATION
     Dosage: TWICE (1 AND 2 DAYS PRIOR TO DELIVERY).

REACTIONS (1)
  - Exposure during pregnancy [Unknown]
